FAERS Safety Report 6658805-2 (Version None)
Quarter: 2010Q1

REPORT INFORMATION
  Report Type: 
  Country: None (occurrence: None)
  Receive Date: 20100330
  Receipt Date: 20100330
  Transmission Date: 20100710
  Serious: Yes (Hospitalization)
  Sender: FDA-Public Use
  Company Number: PHHO2007FR08347

PATIENT
  Sex: Female
  Weight: 58.5 kg

DRUGS (4)
  1. ACLASTA/ZOLEDRONATE T29581+A+SOLINJ [Suspect]
     Indication: OSTEOPOROSIS POSTMENOPAUSAL
     Dosage: 5 MG ONCE A YEAR
     Route: 042
     Dates: start: 20060103
  2. CALCIUM [Concomitant]
  3. VITAMIN D [Concomitant]
  4. ARIMIDEX [Concomitant]
     Indication: BREAST CANCER
     Dosage: 1 MG, QD
     Route: 048
     Dates: start: 20070505

REACTIONS (3)
  - BREAST CANCER [None]
  - MASTECTOMY [None]
  - SURGERY [None]
